FAERS Safety Report 10582479 (Version 1)
Quarter: 2014Q4

REPORT INFORMATION
  Report Type: Report from Study
  Country: US (occurrence: US)
  Receive Date: 20141113
  Receipt Date: 20141113
  Transmission Date: 20150529
  Serious: Yes (Other)
  Sender: FDA-Public Use
  Company Number: US-TAKEDA-2014MPI002975

PATIENT
  Age: 55 Year
  Sex: Female

DRUGS (11)
  1. CYTOXAN [Suspect]
     Active Substance: CYCLOPHOSPHAMIDE
     Dosage: 400 MG/M2, ON DAYS 1, 2, 3, 4
     Route: 042
     Dates: start: 20140812, end: 20140823
  2. ETOPOSIDE. [Suspect]
     Active Substance: ETOPOSIDE
     Indication: PLASMA CELL MYELOMA
     Dosage: 10 MG/M2, ON DAYS 1, 2, 3 AND 4
     Route: 042
     Dates: start: 20140812, end: 20140823
  3. CYTOXAN [Suspect]
     Active Substance: CYCLOPHOSPHAMIDE
     Indication: PLASMA CELL MYELOMA
     Dosage: 300 MG/M2, 1/WEEK
     Route: 048
     Dates: start: 20140430, end: 20140806
  4. CISPLATIN. [Suspect]
     Active Substance: CISPLATIN
     Indication: PLASMA CELL MYELOMA
     Dosage: 10 MG/M2, ON DAY 1, 2, 3 AND 4
     Route: 042
     Dates: start: 20140812, end: 20140823
  5. DEXAMETHASONE. [Suspect]
     Active Substance: DEXAMETHASONE
     Dosage: 40 MG, ON DAYS 1, 2, 3, 4
     Route: 048
     Dates: start: 20140812, end: 20140823
  6. DEXAMETHASONE. [Suspect]
     Active Substance: DEXAMETHASONE
     Indication: PLASMA CELL MYELOMA
     Dosage: 40 MG, 1/WEEK
     Route: 048
     Dates: start: 20140630, end: 20140806
  7. THALIDOMIDE [Suspect]
     Active Substance: THALIDOMIDE
     Indication: PLASMA CELL MYELOMA
     Dosage: 50 MG, DAILY FOR 21 DAYS OF 28 DAYS
     Route: 048
     Dates: start: 20140430, end: 20140806
  8. THALIDOMIDE [Suspect]
     Active Substance: THALIDOMIDE
     Dosage: 200 MG, DAILY AT BEDTIME
     Route: 048
     Dates: start: 20140812, end: 20140823
  9. VELCADE [Suspect]
     Active Substance: BORTEZOMIB
     Indication: PLASMA CELL MYELOMA
     Dosage: 1.5 MG/M2, 1 IN 1 WEAK
     Route: 058
     Dates: start: 20140430, end: 20140806
  10. VELCADE [Suspect]
     Active Substance: BORTEZOMIB
     Dosage: 1 MG/M2, ON DAYS 1, 4, 8, 11
     Route: 042
     Dates: start: 20140812, end: 20140823
  11. DOXORUBICIN [Suspect]
     Active Substance: DOXORUBICIN
     Indication: PLASMA CELL MYELOMA
     Dosage: 10 MG/M2, ON DAY 1, 2, 3 AND 4
     Route: 042
     Dates: start: 20140812, end: 20140823

REACTIONS (2)
  - Mucosal inflammation [Recovered/Resolved]
  - Back pain [Not Recovered/Not Resolved]

NARRATIVE: CASE EVENT DATE: 20140807
